FAERS Safety Report 24535284 (Version 2)
Quarter: 2024Q4

REPORT INFORMATION
  Report Type: Spontaneous
  Country: EG (occurrence: EG)
  Receive Date: 20241022
  Receipt Date: 20241218
  Transmission Date: 20250115
  Serious: Yes (Hospitalization, Other)
  Sender: AMGEN
  Company Number: EG-PFIZER INC-PV202300188413

PATIENT
  Age: 24 Year
  Sex: Female

DRUGS (1)
  1. ENBREL [Suspect]
     Active Substance: ETANERCEPT
     Indication: Rheumatoid arthritis
     Dosage: ENBREL 50MG, ONE PREFILLED SYRINGE EVERY WEEK
     Route: 058
     Dates: start: 20231015

REACTIONS (3)
  - Rheumatoid arthritis [Unknown]
  - Pyrexia [Unknown]
  - Oedema peripheral [Unknown]
